FAERS Safety Report 15410830 (Version 1)
Quarter: 2018Q3

REPORT INFORMATION
  Report Type: Spontaneous
  Country: US (occurrence: US)
  Receive Date: 20180921
  Receipt Date: 20180921
  Transmission Date: 20181010
  Serious: Yes (Hospitalization, Other)
  Sender: FDA-Public Use
  Company Number: US-TORRENT-00000751

PATIENT
  Age: 7 Year
  Sex: Female

DRUGS (2)
  1. CYPROHEPTADINE. [Concomitant]
     Active Substance: CYPROHEPTADINE
     Indication: PARTIAL SEIZURES
     Dosage: CYPROHEPTADINE 5 ML AT BEDTIME, AS NEEDED
  2. TOPIRAMATE. [Suspect]
     Active Substance: TOPIRAMATE
     Indication: PARTIAL SEIZURES
     Dosage: LAST DOSE 20 HOURS PRIOR TO PRESENTATION, AT BEDTIME

REACTIONS (3)
  - Acute myopia [Recovered/Resolved]
  - Angle closure glaucoma [Recovered/Resolved]
  - Toxicity to various agents [Recovered/Resolved]
